FAERS Safety Report 23553085 (Version 1)
Quarter: 2024Q1

REPORT INFORMATION
  Report Type: Spontaneous
  Country: US (occurrence: US)
  Receive Date: 20240222
  Receipt Date: 20240222
  Transmission Date: 20240410
  Serious: No
  Sender: FDA-Public Use
  Company Number: US-KVK-TECH, INC-20230500092

PATIENT

DRUGS (1)
  1. HOMATROPINE METHYLBROMIDE\HYDROCODONE BITARTRATE [Suspect]
     Active Substance: HOMATROPINE METHYLBROMIDE\HYDROCODONE BITARTRATE
     Indication: Cough
     Dosage: 10 MILLILITER (TWO DOSES) PRESCRIBED 5 ML EACH DOSE BY EVERY 4 HRS)
     Route: 048
     Dates: start: 20230522, end: 20230522

REACTIONS (4)
  - Foaming at mouth [Recovered/Resolved]
  - Dry mouth [Recovered/Resolved]
  - Product taste abnormal [Recovered/Resolved]
  - Drug ineffective [Recovered/Resolved]

NARRATIVE: CASE EVENT DATE: 20230522
